FAERS Safety Report 24763120 (Version 1)
Quarter: 2024Q4

REPORT INFORMATION
  Report Type: Spontaneous
  Country: US (occurrence: US)
  Receive Date: 20241222
  Receipt Date: 20241222
  Transmission Date: 20250115
  Serious: No
  Sender: DR REDDYS
  Company Number: US-DRL-USA-SPO/USA/24/0018277

PATIENT
  Age: 44 Year
  Sex: Female

DRUGS (2)
  1. LENALIDOMIDE [Suspect]
     Active Substance: LENALIDOMIDE
     Indication: Plasma cell myeloma
     Dosage: (7.5 MILLIGRAM(S), 21 IN 28 DAY
     Route: 065
  2. LENALIDOMIDE [Suspect]
     Active Substance: LENALIDOMIDE
     Dosage: (10 MILLIGRAM(S), 21 IN 28 DAY
     Route: 065

REACTIONS (1)
  - Human chorionic gonadotropin increased [Unknown]
